FAERS Safety Report 11418856 (Version 1)
Quarter: 2015Q3

REPORT INFORMATION
  Report Type: Spontaneous
  Country: US (occurrence: None)
  Receive Date: 20150825
  Receipt Date: 20150825
  Transmission Date: 20151125
  Serious: Yes (Death, Life-Threatening, Hospitalization, Disabling)
  Sender: FDA-Public Use
  Company Number: None

PATIENT
  Age: 64 Year
  Sex: Female
  Weight: 67.4 kg

DRUGS (12)
  1. SODIUM BICARBONATE. [Concomitant]
     Active Substance: SODIUM BICARBONATE
  2. NIFEDIPINE ER (PROCARDIA XL) [Concomitant]
  3. COLCHICINE (COLCRYS) [Concomitant]
  4. OMBITASVIR/PARITAPREVIR/RITONAVI 12.5MG/75MG/50MG ABBVIE INC. [Suspect]
     Active Substance: OMBITASVIR\PARITAPREVIR\RITONAVIR
     Indication: HEPATITIS C
     Dosage: 2 PILLS
     Route: 048
     Dates: start: 20150522, end: 20150602
  5. CIPROFLOXACIN. [Concomitant]
     Active Substance: CIPROFLOXACIN
  6. SEVELAMER CARBONATE (RENVELA) [Concomitant]
  7. ZANTAC [Concomitant]
     Active Substance: RANITIDINE HYDROCHLORIDE
  8. METOPROLOL SUCCINATE XL (TOPROL XL) [Concomitant]
  9. DASABUVIR [Suspect]
     Active Substance: DASABUVIR
     Indication: HEPATITIS C
     Dosage: 1 PILL
     Route: 048
     Dates: start: 20150522, end: 20150602
  10. LISNIOPRIL (PRINIVIL, ZESTRIL) [Concomitant]
  11. LASIX [Concomitant]
     Active Substance: FUROSEMIDE
  12. LISNIOPRIL (PRINIVIL, ZESTRIL) [Concomitant]

REACTIONS (13)
  - Hypotension [None]
  - Vomiting [None]
  - Anuria [None]
  - Decreased appetite [None]
  - General physical health deterioration [None]
  - Nausea [None]
  - Chest pain [None]
  - Asthenia [None]
  - Blood lactic acid increased [None]
  - Electrolyte imbalance [None]
  - Dizziness [None]
  - Metabolic acidosis [None]
  - Continuous haemodiafiltration [None]

NARRATIVE: CASE EVENT DATE: 20150602
